FAERS Safety Report 19242678 (Version 1)
Quarter: 2021Q2

REPORT INFORMATION
  Report Type: Spontaneous
  Country: US (occurrence: US)
  Receive Date: 20210511
  Receipt Date: 20210511
  Transmission Date: 20210717
  Serious: Yes (Other)
  Sender: FDA-Public Use
  Company Number: None

PATIENT
  Sex: Female
  Weight: 108 kg

DRUGS (9)
  1. DEPAKOTE [Concomitant]
     Active Substance: DIVALPROEX SODIUM
  2. MOTRIN [Concomitant]
     Active Substance: IBUPROFEN
  3. METFORMIN EXTENDED RELEASE [Suspect]
     Active Substance: METFORMIN HYDROCHLORIDE
  4. PEPCID [Concomitant]
     Active Substance: FAMOTIDINE
  5. XANAX [Concomitant]
     Active Substance: ALPRAZOLAM
  6. AMBIEN [Concomitant]
     Active Substance: ZOLPIDEM TARTRATE
  7. ABILIFY [Concomitant]
     Active Substance: ARIPIPRAZOLE
  8. MORPHINE [Concomitant]
     Active Substance: MORPHINE
  9. COLESTIPOL [Concomitant]
     Active Substance: COLESTIPOL

REACTIONS (10)
  - Headache [None]
  - Asthenia [None]
  - Foaming at mouth [None]
  - Vomiting projectile [None]
  - Nausea [None]
  - Chills [None]
  - Dehydration [None]
  - Abdominal pain [None]
  - Diarrhoea [None]
  - Weight decreased [None]
